FAERS Safety Report 13802747 (Version 1)
Quarter: 2017Q3

REPORT INFORMATION
  Report Type: Spontaneous
  Country: US (occurrence: US)
  Receive Date: 20170728
  Receipt Date: 20170728
  Transmission Date: 20171127
  Serious: No
  Sender: FDA-Public Use
  Company Number: US-PERRIGO-16US021125

PATIENT
  Age: 64 Year
  Sex: Male

DRUGS (1)
  1. MINOXIDIL. [Suspect]
     Active Substance: MINOXIDIL
     Indication: ALOPECIA
     Dosage: 1 ML, QD
     Route: 061
     Dates: start: 201607, end: 20161019

REACTIONS (7)
  - Application site exfoliation [Unknown]
  - Dry skin [Unknown]
  - Inappropriate schedule of drug administration [Recovered/Resolved]
  - Erythema [Unknown]
  - Skin hypertrophy [Unknown]
  - Application site irritation [Unknown]
  - Application site erythema [Unknown]

NARRATIVE: CASE EVENT DATE: 201607
